FAERS Safety Report 5062134-0 (Version None)
Quarter: 2006Q3

REPORT INFORMATION
  Report Type: 
  Country: None (occurrence: None)
  Receive Date: 20060721
  Receipt Date: 20060718
  Transmission Date: 20061208
  Serious: Yes (Other)
  Sender: FDA-Public Use
  Company Number: US-2006-010674

PATIENT
  Age: 25 Year
  Sex: Female
  Weight: 109 kg

DRUGS (1)
  1. MIRENA [Suspect]
     Indication: CONTRACEPTION
     Dosage: 20 UG/DAY, CONT, INTRA-UTERINE
     Route: 015
     Dates: start: 20030621, end: 20060510

REACTIONS (4)
  - BENIGN INTRACRANIAL HYPERTENSION [None]
  - MIGRAINE [None]
  - VISUAL DISTURBANCE [None]
  - VISUAL FIELD DEFECT [None]
